FAERS Safety Report 9852313 (Version 1)
Quarter: 2014Q1

REPORT INFORMATION
  Report Type: Spontaneous
  Country: US (occurrence: None)
  Receive Date: 20140128
  Receipt Date: 20140128
  Transmission Date: 20141002
  Serious: Yes (Hospitalization)
  Sender: FDA-Public Use
  Company Number: None

PATIENT
  Age: 67 Year
  Sex: Male
  Weight: 60 kg

DRUGS (7)
  1. GAMMAGARD [Suspect]
     Indication: SCLERODERMA
     Dosage: Q DAY X 5 REP Q 4 WK; QD X 5 REPQ 4 WK
     Route: 042
     Dates: start: 20131209, end: 20131212
  2. LISINOPRIL [Concomitant]
  3. LORATADINE [Concomitant]
  4. NILOTINIB [Concomitant]
  5. OMEPRAZOLE [Concomitant]
  6. DIPHENHYDRAMINE [Concomitant]
  7. ACETAMINOPHEN [Concomitant]

REACTIONS (1)
  - Meningitis aseptic [None]
